APPROVED DRUG PRODUCT: ONDANSETRON HYDROCHLORIDE
Active Ingredient: ONDANSETRON HYDROCHLORIDE
Strength: EQ 4MG BASE/5ML
Dosage Form/Route: SOLUTION;ORAL
Application: A078776 | Product #001 | TE Code: AA
Applicant: AUROBINDO PHARMA LTD
Approved: Nov 28, 2007 | RLD: No | RS: No | Type: RX